FAERS Safety Report 23681004 (Version 1)
Quarter: 2024Q1

REPORT INFORMATION
  Report Type: Spontaneous
  Country: US (occurrence: US)
  Receive Date: 20240328
  Receipt Date: 20240328
  Transmission Date: 20240410
  Serious: No
  Sender: FDA-Public Use
  Company Number: US-TEVA-VS-3149258

PATIENT
  Weight: 127 kg

DRUGS (5)
  1. DESMOPRESSIN ACETATE [Suspect]
     Active Substance: DESMOPRESSIN ACETATE
     Indication: Diabetes insipidus
     Dosage: THREE TABLET IN THE MORNING AND THREE TABLET IN THE NIGHT BY MOUTH
     Route: 065
  2. TESTOSTERONE CYPIONATE [Concomitant]
     Active Substance: TESTOSTERONE CYPIONATE
     Route: 065
  3. HYDROCORTISONE [Concomitant]
     Active Substance: HYDROCORTISONE
     Indication: Adrenal insufficiency
     Dosage: THREE TABLET IN THE MORNING AND THREE TABLET IN THE NIGHT
     Route: 048
  4. LEVOTHYROXINE [Concomitant]
     Active Substance: LEVOTHYROXINE\LEVOTHYROXINE SODIUM
     Indication: Thyroid hormone replacement therapy
     Dosage: ROUTE: MOUTH
     Route: 065
  5. GENOTROPIN [Concomitant]
     Active Substance: SOMATROPIN
     Dosage: INJECTION INTO THIGHS AND STOMACH
     Route: 065

REACTIONS (1)
  - Product dose omission issue [Not Recovered/Not Resolved]
